FAERS Safety Report 14303874 (Version 1)
Quarter: 2017Q4

REPORT INFORMATION
  Report Type: Report from Study
  Country: JP (occurrence: JP)
  Receive Date: 20171219
  Receipt Date: 20171219
  Transmission Date: 20180321
  Serious: Yes (Other)
  Sender: FDA-Public Use
  Company Number: JP-OTSUKA-JP-2012-11976

PATIENT
  Age: 46 Year
  Sex: Male

DRUGS (11)
  1. LEVOTOMIN [Concomitant]
     Active Substance: LEVOMEPROMAZINE
  2. RISPERIDONE. [Concomitant]
     Active Substance: RISPERIDONE
  3. PENTONA [Concomitant]
     Active Substance: MAZATICOL HYDROCHLORIDE
  4. RISPERIDONE. [Concomitant]
     Active Substance: RISPERIDONE
  5. ARIPIPRAZOLE. [Suspect]
     Active Substance: ARIPIPRAZOLE
     Dosage: 9 MG, QD
     Route: 048
     Dates: start: 20080605, end: 20080625
  6. ARIPIPRAZOLE. [Suspect]
     Active Substance: ARIPIPRAZOLE
     Dosage: 12 MG, QD
     Route: 048
     Dates: start: 20080626, end: 20080707
  7. DEPAKENE [Concomitant]
     Active Substance: VALPROIC ACID
  8. CEREGASRON [Concomitant]
     Active Substance: IRSOGLADINE MALEATE
  9. ARIPIPRAZOLE. [Suspect]
     Active Substance: ARIPIPRAZOLE
     Indication: SCHIZOPHRENIA
     Dosage: 3 MG, QD
     Route: 048
     Dates: start: 20080407, end: 20080514
  10. ARIPIPRAZOLE. [Suspect]
     Active Substance: ARIPIPRAZOLE
     Dosage: 6 MG, QD
     Route: 048
     Dates: start: 20080515, end: 20080604
  11. LEVOMEPROMAZINE [Concomitant]
     Active Substance: LEVOMEPROMAZINE

REACTIONS (2)
  - Psychiatric symptom [Recovered/Resolved]
  - Drug ineffective [Unknown]

NARRATIVE: CASE EVENT DATE: 20080702
